FAERS Safety Report 5376753-5 (Version None)
Quarter: 2007Q3

REPORT INFORMATION
  Report Type: 
  Country: None (occurrence: None)
  Receive Date: 20070703
  Receipt Date: 20070626
  Transmission Date: 20080115
  Serious: Yes (Hospitalization, Other)
  Sender: FDA-Public Use
  Company Number: PHBS2007JP10505

PATIENT
  Age: 76 Year
  Sex: Female
  Weight: 67 kg

DRUGS (3)
  1. PROPOFOL [Suspect]
     Indication: ANAESTHESIA
  2. ATORVASTATIN [Concomitant]
     Indication: HYPERLIPIDAEMIA
     Route: 048
  3. VALSARTAN [Suspect]
     Indication: HYPERTENSION
     Route: 048

REACTIONS (3)
  - CYSTITIS INTERSTITIAL [None]
  - POLLAKIURIA [None]
  - SWOLLEN TONGUE [None]
